FAERS Safety Report 20345061 (Version 1)
Quarter: 2022Q1

REPORT INFORMATION
  Report Type: Spontaneous
  Country: US (occurrence: None)
  Receive Date: 20220114
  Receipt Date: 20220114
  Transmission Date: 20220423
  Serious: Yes (Other)
  Sender: FDA-Public Use
  Company Number: None

PATIENT
  Age: 34 Year
  Sex: Female
  Weight: 45 kg

DRUGS (10)
  1. SOTROVIMAB [Suspect]
     Active Substance: SOTROVIMAB
     Indication: COVID-19
     Dosage: OTHER FREQUENCY : ONCE;?
     Route: 041
     Dates: start: 20220107, end: 20220107
  2. depakote sprinles [Concomitant]
     Dates: start: 20211018
  3. MAGNESIUM OXIDE [Concomitant]
     Active Substance: MAGNESIUM OXIDE
     Dates: start: 20211018
  4. CALCIUM CARBONATE [Concomitant]
     Active Substance: CALCIUM CARBONATE
     Dates: start: 20161006
  5. CLONAZEPAM [Concomitant]
     Active Substance: CLONAZEPAM
     Dates: start: 20160427
  6. levabuterol nebulizer solution [Concomitant]
     Dates: start: 20161013
  7. PERIACTIN [Concomitant]
     Active Substance: CYPROHEPTADINE HYDROCHLORIDE
     Dates: start: 20161205
  8. FOLIC ACID [Concomitant]
     Active Substance: FOLIC ACID
     Dates: start: 20161205
  9. budesonide nebulizer solution [Concomitant]
     Dates: start: 20200310
  10. acetylcysteine nebulizer solution [Concomitant]
     Dates: start: 20210517

REACTIONS (7)
  - Cough [None]
  - Oxygen saturation decreased [None]
  - Unresponsive to stimuli [None]
  - Partial seizures [None]
  - Mental status changes [None]
  - Lung infiltration [None]
  - Leukopenia [None]

NARRATIVE: CASE EVENT DATE: 20220107
